FAERS Safety Report 7640084-0 (Version None)
Quarter: 2011Q3

REPORT INFORMATION
  Report Type: 
  Country: None (occurrence: None)
  Receive Date: 20110727
  Receipt Date: 20110714
  Transmission Date: 20111222
  Serious: Yes (Hospitalization, Other)
  Sender: FDA-Public Use
  Company Number: US-ELI_LILLY_AND_COMPANY-US201106005892

PATIENT
  Sex: Female

DRUGS (2)
  1. FORTEO [Suspect]
     Indication: OSTEOPOROSIS
     Dosage: 20 UG, QD
     Route: 065
     Dates: start: 20110301, end: 20110615
  2. METFORMIN HCL [Concomitant]
     Indication: DIABETES MELLITUS

REACTIONS (11)
  - HEAD INJURY [None]
  - BLOOD IRON DECREASED [None]
  - PELVIC FRACTURE [None]
  - WOUND INFECTION STAPHYLOCOCCAL [None]
  - COMMUNICATION DISORDER [None]
  - BLOOD SODIUM DECREASED [None]
  - BACK DISORDER [None]
  - FALL [None]
  - INTRACRANIAL HAEMATOMA [None]
  - FATIGUE [None]
  - MEDICATION ERROR [None]
